FAERS Safety Report 21733086 (Version 1)
Quarter: 2022Q4

REPORT INFORMATION
  Report Type: Spontaneous
  Country: US (occurrence: None)
  Receive Date: 20221214
  Receipt Date: 20221214
  Transmission Date: 20230113
  Serious: No
  Sender: FDA-Public Use
  Company Number: None

PATIENT
  Age: 47 Year
  Sex: Female
  Weight: 72.9 kg

DRUGS (2)
  1. PAXLOVID [Suspect]
     Active Substance: NIRMATRELVIR\RITONAVIR
     Indication: COVID-19
     Dosage: OTHER QUANTITY : 3 TABLET(S);?FREQUENCY : TWICE A DAY;?
     Route: 048
     Dates: start: 20221210, end: 20221213
  2. LISINIPROL [Concomitant]

REACTIONS (5)
  - Cognitive disorder [None]
  - Loss of personal independence in daily activities [None]
  - Somnolence [None]
  - Nightmare [None]
  - Agitation [None]

NARRATIVE: CASE EVENT DATE: 20221213
